FAERS Safety Report 21960912 (Version 1)
Quarter: 2023Q1

REPORT INFORMATION
  Report Type: Spontaneous
  Country: US (occurrence: US)
  Receive Date: 20230207
  Receipt Date: 20230207
  Transmission Date: 20230418
  Serious: No
  Sender: FDA-Public Use
  Company Number: US-SA-SAC20230203001159

PATIENT
  Age: 9 Year
  Sex: Female
  Weight: 31.75 kg

DRUGS (4)
  1. DUPIXENT [Suspect]
     Active Substance: DUPILUMAB
     Indication: Eosinophilic oesophagitis
     Dosage: 300 MG, QW
     Route: 058
  2. OMEPRAZOLE [Concomitant]
     Active Substance: OMEPRAZOLE
  3. SINGULAIR [Concomitant]
     Active Substance: MONTELUKAST SODIUM
  4. PULMICORT TURBUHALER [Concomitant]
     Active Substance: BUDESONIDE

REACTIONS (5)
  - Epistaxis [Unknown]
  - Injection site induration [Unknown]
  - Injection site erythema [Unknown]
  - Injection site swelling [Unknown]
  - Product administered to patient of inappropriate age [Unknown]

NARRATIVE: CASE EVENT DATE: 20230101
